FAERS Safety Report 6108826-3 (Version None)
Quarter: 2009Q1

REPORT INFORMATION
  Report Type: 
  Country: None (occurrence: None)
  Receive Date: 20090310
  Receipt Date: 20090304
  Transmission Date: 20090719
  Serious: Yes (Hospitalization, Other)
  Sender: FDA-Public Use
  Company Number: FR-BRISTOL-MYERS SQUIBB COMPANY-14532816

PATIENT
  Age: 75 Year
  Sex: Female

DRUGS (11)
  1. COAPROVEL [Suspect]
     Indication: HYPERTENSION
     Dates: start: 20081231, end: 20090103
  2. APROVEL [Suspect]
     Dates: start: 20081231, end: 20090103
  3. TOPLEXIL [Suspect]
     Indication: BRONCHITIS
     Dates: start: 20081231, end: 20090103
  4. APROVEL [Concomitant]
     Dates: end: 20081231
  5. AMBROXOL [Concomitant]
  6. COQUELUSEDAL [Concomitant]
     Dosage: COQUELUSEDAL ADULTS
     Dates: start: 20081231, end: 20090103
  7. INIPOMP [Concomitant]
     Dates: start: 20080801, end: 20090103
  8. TERALITHE [Concomitant]
     Dosage: TERALITHE LP
     Dates: start: 19980101
  9. RISPERDAL [Concomitant]
     Dates: start: 19980101
  10. NOZINAN [Concomitant]
     Dates: start: 19980101
  11. ANAFRANIL [Concomitant]
     Dates: start: 19980101

REACTIONS (2)
  - ACUTE GENERALISED EXANTHEMATOUS PUSTULOSIS [None]
  - MEDICATION ERROR [None]
